FAERS Safety Report 4533943-9 (Version None)
Quarter: 2004Q4

REPORT INFORMATION
  Report Type: 
  Country: None (occurrence: None)
  Receive Date: 20041221
  Receipt Date: 20041215
  Transmission Date: 20050328
  Serious: Yes (Other)
  Sender: FDA-Public Use
  Company Number: JSJ 001

PATIENT
  Sex: Female
  Weight: 106.1417 kg

DRUGS (9)
  1. UMECTA EMULSION [Suspect]
     Indication: DRY SKIN
     Dosage: APPLY SMALL AMOUNT TOPICALLY TO FOOT DAILY
     Route: 061
     Dates: start: 20041213, end: 20041213
  2. LASIX [Concomitant]
  3. UNITHROID [Concomitant]
  4. ATENOLOL [Concomitant]
  5. DILANTIN [Concomitant]
  6. BUSPAR [Concomitant]
  7. PROZAC [Concomitant]
  8. PRAVACHOL [Concomitant]
  9. METFORMIN HCL [Concomitant]

REACTIONS (3)
  - APPLICATION SITE BURNING [None]
  - APPLICATION SITE VESICLES [None]
  - THERAPY NON-RESPONDER [None]
